FAERS Safety Report 21507161 (Version 2)
Quarter: 2022Q4

REPORT INFORMATION
  Report Type: Spontaneous
  Country: AU (occurrence: None)
  Receive Date: 20221026
  Receipt Date: 20221031
  Transmission Date: 20230112
  Serious: Yes (Life-Threatening, Other)
  Sender: FDA-Public Use
  Company Number: AU-PFIZER INC-202201243416

PATIENT

DRUGS (2)
  1. METHOTREXATE [Suspect]
     Active Substance: METHOTREXATE
     Indication: Product used for unknown indication
     Route: 048
  2. METHOTREXATE [Suspect]
     Active Substance: METHOTREXATE
     Dosage: FOR FOUR CONSECUTIVE DAYS
     Route: 048

REACTIONS (7)
  - Accidental overdose [Unknown]
  - Inappropriate schedule of product administration [Unknown]
  - Product complaint [Unknown]
  - Product packaging quantity issue [Unknown]
  - Pancytopenia [Unknown]
  - Renal impairment [Unknown]
  - Hypotension [Unknown]
